FAERS Safety Report 9932443 (Version 1)
Quarter: 2014Q1

REPORT INFORMATION
  Report Type: Spontaneous
  Country: US (occurrence: US)
  Receive Date: 20140228
  Receipt Date: 20140228
  Transmission Date: 20141002
  Serious: No
  Sender: FDA-Public Use
  Company Number: US-GLAXOSMITHKLINE-A1015142A

PATIENT
  Age: 15 Year
  Sex: Female

DRUGS (5)
  1. LAMOTRIGINE [Suspect]
     Indication: BIPOLAR DISORDER
     Dosage: 100MG PER DAY
     Route: 048
     Dates: start: 20130125, end: 20130203
  2. DEPAKOTE [Suspect]
     Route: 065
  3. LITHIUM [Concomitant]
  4. PROZAC [Concomitant]
  5. CONCERTA [Concomitant]

REACTIONS (2)
  - Rash [Recovered/Resolved]
  - Mania [Not Recovered/Not Resolved]
